FAERS Safety Report 11881200 (Version 4)
Quarter: 2016Q1

REPORT INFORMATION
  Report Type: Spontaneous
  Country: US (occurrence: US)
  Receive Date: 20151231
  Receipt Date: 20160126
  Transmission Date: 20160526
  Serious: Yes (Hospitalization, Other)
  Sender: FDA-Public Use
  Company Number: US-009507513-1512USA013731

PATIENT
  Age: 80 Year
  Sex: Female

DRUGS (2)
  1. EMEND [Suspect]
     Active Substance: APREPITANT
     Indication: NAUSEA
     Dosage: 125 MG/ONE TABLET RIGHT BEFORE AND ONE TABLET THE NEXT TWO DAYS AFTER CHEMOTHERAPY
     Route: 048
  2. EMEND [Suspect]
     Active Substance: APREPITANT
     Indication: PAIN

REACTIONS (1)
  - Pharyngeal neoplasm benign [Unknown]

NARRATIVE: CASE EVENT DATE: 201511
